FAERS Safety Report 9534026 (Version 2)
Quarter: 2013Q3

REPORT INFORMATION
  Report Type: Spontaneous
  Country: US (occurrence: US)
  Receive Date: 20130918
  Receipt Date: 20130918
  Transmission Date: 20140515
  Serious: No
  Sender: FDA-Public Use
  Company Number: US-PURDUE-USA-2011-0074675

PATIENT
  Age: 64 Year
  Sex: Female
  Weight: 63.49 kg

DRUGS (4)
  1. BUTRANS [Suspect]
     Indication: BACK PAIN
     Dosage: 5 MCG, Q1H
     Route: 062
  2. BUTRANS [Suspect]
     Indication: PAIN IN EXTREMITY
  3. BUTRANS [Suspect]
     Indication: SPINAL OSTEOARTHRITIS
  4. BUTRANS [Suspect]
     Indication: UNEVALUABLE EVENT

REACTIONS (5)
  - Foreign body [Recovered/Resolved]
  - Application site scar [Recovered/Resolved]
  - Drug administered at inappropriate site [Recovered/Resolved]
  - Product physical issue [Recovered/Resolved]
  - Pain [Recovered/Resolved]
